FAERS Safety Report 23287132 (Version 1)
Quarter: 2023Q4

REPORT INFORMATION
  Report Type: Spontaneous
  Country: SG (occurrence: SG)
  Receive Date: 20231212
  Receipt Date: 20231212
  Transmission Date: 20240109
  Serious: Yes (Other)
  Sender: FDA-Public Use
  Company Number: SG-AMGEN-SGPSP2023218337

PATIENT

DRUGS (3)
  1. BEVACIZUMAB [Suspect]
     Active Substance: BEVACIZUMAB
     Indication: Clear cell endometrial carcinoma
     Dosage: UNK
     Route: 065
  2. PEMBROLIZUMAB [Concomitant]
     Active Substance: PEMBROLIZUMAB
     Indication: Clear cell endometrial carcinoma
     Dosage: 200 MILLIGRAM ON DAY 1
     Route: 042
  3. LENVATINIB [Concomitant]
     Active Substance: LENVATINIB
     Indication: Clear cell endometrial carcinoma
     Dosage: 20 MILLIGRAM, QD, Q21 DAYS
     Route: 048

REACTIONS (7)
  - Adrenal insufficiency [Unknown]
  - Rash [Unknown]
  - Anaemia [Unknown]
  - Hypertension [Unknown]
  - Hyponatraemia [Unknown]
  - Mucosal inflammation [Unknown]
  - Thrombocytopenia [Unknown]
